FAERS Safety Report 5987540-9 (Version None)
Quarter: 2008Q4

REPORT INFORMATION
  Report Type: 
  Country: None (occurrence: None)
  Receive Date: 20081209
  Receipt Date: 20081111
  Transmission Date: 20090506
  Serious: No
  Sender: FDA-Public Use
  Company Number: US-JNJFOC-20081102775

PATIENT
  Sex: Female
  Weight: 90.72 kg

DRUGS (1)
  1. INVEGA [Suspect]
     Indication: SCHIZOPHRENIA
     Route: 048

REACTIONS (3)
  - INCREASED APPETITE [None]
  - NIGHTMARE [None]
  - WEIGHT INCREASED [None]
